FAERS Safety Report 12986279 (Version 2)
Quarter: 2017Q1

REPORT INFORMATION
  Report Type: Spontaneous
  Country: BR (occurrence: BR)
  Receive Date: 20161130
  Receipt Date: 20170224
  Transmission Date: 20170428
  Serious: Yes (Death)
  Sender: FDA-Public Use
  Company Number: BR-SA-2016SA218216

PATIENT
  Age: 95 Year
  Sex: Female
  Weight: 70 kg

DRUGS (1)
  1. CLEXANE [Suspect]
     Active Substance: ENOXAPARIN SODIUM
     Indication: THROMBOSIS
     Dosage: START DATE 15 YEARS AGO ESTIMATED 2002)
     Route: 051
     Dates: start: 2002

REACTIONS (2)
  - Pneumonia [Fatal]
  - Pulmonary oedema [Fatal]
